FAERS Safety Report 18258970 (Version 1)
Quarter: 2020Q3

REPORT INFORMATION
  Report Type: Report from Study
  Country: CA (occurrence: CA)
  Receive Date: 20200911
  Receipt Date: 20200911
  Transmission Date: 20201103
  Serious: Yes (Other)
  Sender: FDA-Public Use
  Company Number: CA-JNJFOC-20200109911

PATIENT
  Age: 15 Year
  Sex: Male
  Weight: 74.8 kg

DRUGS (1)
  1. REMICADE [Suspect]
     Active Substance: INFLIXIMAB
     Indication: COLITIS ULCERATIVE
     Route: 042

REACTIONS (5)
  - Product use issue [Unknown]
  - Haematochezia [Recovering/Resolving]
  - Off label use [Unknown]
  - Headache [Not Recovered/Not Resolved]
  - Frequent bowel movements [Unknown]
